FAERS Safety Report 23144314 (Version 2)
Quarter: 2023Q4

REPORT INFORMATION
  Report Type: Spontaneous
  Country: IT (occurrence: IT)
  Receive Date: 20231103
  Receipt Date: 20231108
  Transmission Date: 20240110
  Serious: Yes (Other)
  Sender: FDA-Public Use
  Company Number: IT-AMGEN-ITASP2023194533

PATIENT

DRUGS (1)
  1. SOTORASIB [Suspect]
     Active Substance: SOTORASIB
     Indication: Non-small cell lung cancer
     Dosage: 960 MILLIGRAM, QD
     Route: 048

REACTIONS (4)
  - Non-small cell lung cancer metastatic [Unknown]
  - Hepatotoxicity [Unknown]
  - Diarrhoea [Unknown]
  - Asthenia [Unknown]
